FAERS Safety Report 5629455-1 (Version None)
Quarter: 2008Q1

REPORT INFORMATION
  Report Type: 
  Country: None (occurrence: None)
  Receive Date: 20080215
  Receipt Date: 20080215
  Transmission Date: 20080703
  Serious: Yes (Hospitalization)
  Sender: FDA-Public Use
  Company Number: None

PATIENT
  Sex: Male
  Weight: 68.0396 kg

DRUGS (7)
  1. INVEGA [Suspect]
     Indication: SCHIZOPHRENIA
     Dosage: 3MG P.O. QAM P.O.
     Route: 048
     Dates: start: 20070926, end: 20070929
  2. SEROQUEL [Concomitant]
  3. OMEGABRITE [Concomitant]
  4. MAALOX [Concomitant]
  5. ACETAMINOPHEN [Concomitant]
  6. MOTRIN [Concomitant]
  7. COGENTIN [Concomitant]

REACTIONS (7)
  - APHASIA [None]
  - EXTRASYSTOLES [None]
  - HEART SOUNDS ABNORMAL [None]
  - HYPERHIDROSIS [None]
  - JUGULAR VEIN DISTENSION [None]
  - SUPRAVENTRICULAR TACHYCARDIA [None]
  - VASODILATATION [None]
